FAERS Safety Report 26124189 (Version 1)
Quarter: 2025Q4

REPORT INFORMATION
  Report Type: Spontaneous
  Country: US (occurrence: US)
  Receive Date: 20251205
  Receipt Date: 20251205
  Transmission Date: 20260117
  Serious: No
  Sender: MITSUBISHI TANABE PHARMA
  Company Number: US-TANABE_PHARMA-MTPA2025-0021221

PATIENT

DRUGS (1)
  1. RADICAVA [Suspect]
     Active Substance: EDARAVONE
     Indication: Amyotrophic lateral sclerosis
     Dosage: UNK
     Route: 065

REACTIONS (4)
  - Fatigue [Recovering/Resolving]
  - Muscle spasms [Unknown]
  - Anxiety [Unknown]
  - Muscle spasticity [Unknown]
